FAERS Safety Report 8930563 (Version 1)
Quarter: 2012Q4

REPORT INFORMATION
  Report Type: 
  Country: MX (occurrence: MX)
  Receive Date: 20121128
  Receipt Date: 20121128
  Transmission Date: 20130627
  Serious: Yes (Death)
  Sender: FDA-Public Use
  Company Number: PHHY2012MX108380

PATIENT
  Age: 90 Year
  Sex: Female

DRUGS (3)
  1. STALEVO [Suspect]
     Indication: PARKINSON^S DISEASE
     Dosage: 1 DF, daily (200/50/12.5mg )
     Route: 048
  2. LEVOTHYROXINE [Concomitant]
     Indication: THYROID CANCER
     Dosage: 1 DF, BID (every 1 hours)
     Dates: start: 2009
  3. CAPTOPRIL [Concomitant]
     Indication: BLOOD PRESSURE
     Dosage: 1 DF, BID (every 1 hours)
     Route: 048
     Dates: start: 2010

REACTIONS (10)
  - Respiratory arrest [Fatal]
  - Neoplasm malignant [Fatal]
  - Oral fungal infection [Unknown]
  - Hypophagia [Unknown]
  - Defaecation urgency [Unknown]
  - Restlessness [Unknown]
  - Flank pain [Unknown]
  - Abnormal behaviour [Unknown]
  - Body temperature increased [Unknown]
  - Fatigue [Unknown]
